FAERS Safety Report 13177616 (Version 1)
Quarter: 2017Q1

REPORT INFORMATION
  Report Type: Report from Study
  Country: US (occurrence: US)
  Receive Date: 20170201
  Receipt Date: 20170201
  Transmission Date: 20170428
  Serious: No
  Sender: FDA-Public Use
  Company Number: US-EXELIXIS-CABO-16006680

PATIENT
  Sex: Male

DRUGS (9)
  1. SIMVASTATIN. [Concomitant]
     Active Substance: SIMVASTATIN
  2. FENTANYL. [Concomitant]
     Active Substance: FENTANYL
  3. RAPAFLO [Concomitant]
     Active Substance: SILODOSIN
  4. CABOMETYX [Suspect]
     Active Substance: CABOZANTINIB S-MALATE
     Indication: RENAL CANCER
     Dosage: 60 MG, QD
     Route: 048
     Dates: start: 20160618, end: 20160708
  5. INLYTA [Concomitant]
     Active Substance: AXITINIB
  6. NEURONTIN [Concomitant]
     Active Substance: GABAPENTIN
  7. XARELTO [Concomitant]
     Active Substance: RIVAROXABAN
  8. PLAVIX [Concomitant]
     Active Substance: CLOPIDOGREL BISULFATE
  9. PROCHLORPERAZINE. [Concomitant]
     Active Substance: PROCHLORPERAZINE

REACTIONS (7)
  - Dry skin [Unknown]
  - Diarrhoea [Unknown]
  - Nasal congestion [Unknown]
  - Oral discomfort [Unknown]
  - Rash generalised [Unknown]
  - Skin ulcer [Unknown]
  - Skin fissures [Unknown]
